FAERS Safety Report 9405495 (Version 2)
Quarter: 2013Q4

REPORT INFORMATION
  Report Type: Spontaneous
  Country: CA (occurrence: CA)
  Receive Date: 20130715
  Receipt Date: 20131024
  Transmission Date: 20140711
  Serious: Yes (Disabling, Other)
  Sender: FDA-Public Use
  Company Number: 2013-002200

PATIENT
  Age: 69 Year
  Sex: Female
  Weight: 72.6 kg

DRUGS (8)
  1. ACTONEL (RISEDRONATE SODIUM) TABLET [Suspect]
     Route: 048
  2. DIDROCAL [Suspect]
     Route: 048
  3. FOSAMAX (ALENDRONATE SODIUM) [Suspect]
     Route: 048
  4. CELEBREX (CELECOXIB) [Concomitant]
  5. DOMPERIDONE (DOMPERIDONE) [Concomitant]
  6. COZAAR (LOSARTAN POTASSIUM) [Concomitant]
  7. NEXIUM/01479302/(ESOMEPRAZOLE MAGNESIUM) [Concomitant]
  8. LOSEC/0061201/(OMEPRAZOLE) [Concomitant]

REACTIONS (3)
  - Stress fracture [None]
  - Pain [None]
  - Drug ineffective [None]
